FAERS Safety Report 8947881 (Version 1)
Quarter: 2012Q4

REPORT INFORMATION
  Report Type: Spontaneous
  Country: US (occurrence: None)
  Receive Date: 20121127
  Receipt Date: 20121127
  Transmission Date: 20130627
  Serious: Yes (Hospitalization)
  Sender: FDA-Public Use
  Company Number: ACO_33042_2012

PATIENT
  Sex: Female

DRUGS (2)
  1. AMPYRA (DALFAMPRIDINE) TABLET, 10MG [Suspect]
     Dates: start: 201004
  2. GILENYA (FINGOLIMOD HYDROCHLORIDE) [Concomitant]

REACTIONS (1)
  - Thermal burn [None]
